FAERS Safety Report 22158245 (Version 2)
Quarter: 2023Q4

REPORT INFORMATION
  Report Type: Report from Study
  Country: US (occurrence: US)
  Receive Date: 20230331
  Receipt Date: 20231005
  Transmission Date: 20240110
  Serious: Yes (Other)
  Sender: FDA-Public Use
  Company Number: US-ACADIA PHARMACEUTICALS INC.-ACA-2023-PIM-000946

PATIENT
  Sex: Female

DRUGS (9)
  1. NUPLAZID [Suspect]
     Active Substance: PIMAVANSERIN TARTRATE
     Indication: Parkinson^s disease
     Dosage: 34 MILLIGRAM, QD
     Route: 048
     Dates: start: 202212
  2. TEMAZEPAM [Concomitant]
     Active Substance: TEMAZEPAM
  3. SIMVASTATIN [Concomitant]
     Active Substance: SIMVASTATIN
  4. BUSPIRONE [Concomitant]
     Active Substance: BUSPIRONE HYDROCHLORIDE
  5. CHOLECALCIFEROL [Concomitant]
     Active Substance: CHOLECALCIFEROL
  6. RYTARY [Concomitant]
     Active Substance: CARBIDOPA\LEVODOPA
  7. DICLOFENAC [Concomitant]
     Active Substance: DICLOFENAC
  8. ACYCLOVIR [Concomitant]
     Active Substance: ACYCLOVIR
  9. NOURIANZ [Concomitant]
     Active Substance: ISTRADEFYLLINE

REACTIONS (3)
  - Terminal state [Not Recovered/Not Resolved]
  - Skin lesion [Unknown]
  - Asthenia [Unknown]

NARRATIVE: CASE EVENT DATE: 20230101
